FAERS Safety Report 5575579-7 (Version None)
Quarter: 2007Q4

REPORT INFORMATION
  Report Type: 
  Country: None (occurrence: None)
  Receive Date: 20071130
  Receipt Date: 20070912
  Transmission Date: 20080405
  Serious: No
  Sender: FDA-Public Use
  Company Number: US200709003008

PATIENT
  Age: 73 Year
  Sex: Male
  Weight: 112.5 kg

DRUGS (12)
  1. BYETTA [Suspect]
     Indication: TYPE 2 DIABETES MELLITUS
     Dosage: 5 UG, 2/D, SUBCUTANEOUS
     Route: 058
     Dates: start: 20061001, end: 20070101
  2. BYETTA [Suspect]
     Dosage: 10 UG, 2/D, SUBCUTANEOUS
     Route: 058
     Dates: start: 20070101
  3. METFORMIN HCL [Concomitant]
  4. AMARYL [Concomitant]
  5. AVANDIA [Concomitant]
  6. ALLOPURINOL [Concomitant]
  7. DIOVAN (HYDROCHLOROTHIAZIDE, VALSARTAN) [Concomitant]
  8. VYTORIN [Concomitant]
  9. SOTALOL HCL [Concomitant]
  10. WARFARIN SODIUM [Concomitant]
  11. NORVASC [Concomitant]
  12. LANOXIN [Concomitant]

REACTIONS (3)
  - ABDOMINAL PAIN [None]
  - PAIN [None]
  - SCROTAL PAIN [None]
